FAERS Safety Report 7428944-7 (Version None)
Quarter: 2011Q2

REPORT INFORMATION
  Report Type: 
  Country: None (occurrence: None)
  Receive Date: 20110415
  Receipt Date: 20110415
  Transmission Date: 20111010
  Serious: Yes (Life-Threatening, Hospitalization)
  Sender: FDA-Public Use
  Company Number: None

PATIENT
  Age: 26 Year
  Sex: Female
  Weight: 66.6788 kg

DRUGS (1)
  1. ALLI [Suspect]
     Indication: WEIGHT INCREASED
     Dosage: 60MG 1 CAPSULE 3X/DAY PO
     Route: 048
     Dates: start: 20070707, end: 20080707

REACTIONS (1)
  - CHOLECYSTECTOMY [None]
